FAERS Safety Report 6139298-0 (Version None)
Quarter: 2009Q2

REPORT INFORMATION
  Report Type: 
  Country: None (occurrence: None)
  Receive Date: 20090401
  Receipt Date: 20090330
  Transmission Date: 20091009
  Serious: Yes (Other)
  Sender: FDA-Public Use
  Company Number: GB-BRISTOL-MYERS SQUIBB COMPANY-14551105

PATIENT
  Age: 45 Year
  Sex: Male

DRUGS (3)
  1. CETUXIMAB [Suspect]
     Indication: COLORECTAL CANCER
     Dosage: 5MG/ML
     Route: 042
     Dates: start: 20080416
  2. OXALIPLATIN [Suspect]
     Indication: COLORECTAL CANCER
     Route: 042
     Dates: start: 20080416
  3. FLUOROURACIL [Suspect]
     Indication: COLORECTAL CANCER
     Dosage: ALSO RECEIVED FLUOROURACIL INTRAVENOUSLY ON 16-APR-2008
     Route: 040
     Dates: start: 20080416

REACTIONS (1)
  - CATHETER THROMBOSIS [None]
